FAERS Safety Report 17191880 (Version 1)
Quarter: 2019Q4

REPORT INFORMATION
  Report Type: Spontaneous
  Country: US (occurrence: US)
  Receive Date: 20191223
  Receipt Date: 20191223
  Transmission Date: 20200122
  Serious: No
  Sender: FDA-Public Use
  Company Number: US-BEH-2019110548

PATIENT

DRUGS (1)
  1. PRIVIGEN [Suspect]
     Active Substance: HUMAN IMMUNOGLOBULIN G
     Dosage: UNK
     Route: 042
     Dates: start: 2019

REACTIONS (5)
  - Immune system disorder [Unknown]
  - No adverse event [Unknown]
  - Pyrexia [Unknown]
  - Viral infection [Unknown]
  - Product storage error [Unknown]
